FAERS Safety Report 23302498 (Version 2)
Quarter: 2024Q1

REPORT INFORMATION
  Report Type: Spontaneous
  Country: US (occurrence: US)
  Receive Date: 20231215
  Receipt Date: 20240123
  Transmission Date: 20240410
  Serious: No
  Sender: FDA-Public Use
  Company Number: US-THERATECHNOLOGIES INC.-2023-THE-TES-000511

PATIENT

DRUGS (1)
  1. EGRIFTA SV [Suspect]
     Active Substance: TESAMORELIN ACETATE
     Indication: Lipodystrophy acquired
     Dosage: 0.35 ML, QD
     Route: 065
     Dates: start: 202304, end: 20231217

REACTIONS (2)
  - Renal disorder [Unknown]
  - Drug ineffective [Unknown]

NARRATIVE: CASE EVENT DATE: 20231123
